FAERS Safety Report 18728842 (Version 5)
Quarter: 2021Q4

REPORT INFORMATION
  Report Type: Spontaneous
  Country: US (occurrence: US)
  Receive Date: 20210112
  Receipt Date: 20211217
  Transmission Date: 20220303
  Serious: No
  Sender: FDA-Public Use
  Company Number: US-PFIZER INC-2021008240

PATIENT
  Age: 5 Year
  Sex: Male

DRUGS (2)
  1. GENOTROPIN [Suspect]
     Active Substance: SOMATROPIN
     Dosage: ALTERNATING DOSE 0.4MG 3 DAYS A WEEK AND 0.6MG 4 DAYS A WEEK
     Dates: start: 20191123
  2. GENOTROPIN [Suspect]
     Active Substance: SOMATROPIN
     Dosage: ALTERNATING DOSE 0.4MG 3 DAYS A WEEK AND 0.6MG 4 DAYS A WEEK
     Dates: start: 20191123

REACTIONS (4)
  - Injection site pain [Unknown]
  - Drug dose omission by device [Unknown]
  - Device breakage [Unknown]
  - Device leakage [Unknown]
